FAERS Safety Report 4959454-4 (Version None)
Quarter: 2006Q1

REPORT INFORMATION
  Report Type: 
  Country: None (occurrence: None)
  Receive Date: 20060201
  Receipt Date: 20051123
  Transmission Date: 20060701
  Serious: No
  Sender: FDA-Public Use
  Company Number: 2005PV004808

PATIENT
  Age: 70 Year
  Sex: Male
  Weight: 93.441 kg

DRUGS (2)
  1. BYETTA [Suspect]
     Indication: DIABETES MELLITUS NON-INSULIN-DEPENDENT
     Dosage: 5 MCG;BID;SC
     Route: 058
     Dates: start: 20051014, end: 20051031
  2. GLIPIZIDE [Concomitant]

REACTIONS (6)
  - COUGH [None]
  - INFLUENZA [None]
  - INJECTION SITE BRUISING [None]
  - INJECTION SITE HAEMORRHAGE [None]
  - PAIN [None]
  - PYREXIA [None]
